FAERS Safety Report 9442914 (Version 2)
Quarter: 2013Q3

REPORT INFORMATION
  Report Type: Spontaneous
  Country: PT (occurrence: PT)
  Receive Date: 20130806
  Receipt Date: 20130812
  Transmission Date: 20140515
  Serious: Yes (Life-Threatening, Hospitalization, Other)
  Sender: FDA-Public Use
  Company Number: PT-ASTRAZENECA-2013SE60846

PATIENT
  Sex: Female

DRUGS (4)
  1. SEROQUEL SR [Suspect]
     Indication: DYSTHYMIC DISORDER
     Dosage: 19 TABLETS OF 200 MG (3800 MG, FREQUENCY NOT APPLICABLE)
     Route: 048
  2. ORAL CONTRACEPTIVE [Interacting]
     Indication: ORAL CONTRACEPTION
     Route: 048
  3. VICTAN [Concomitant]
     Indication: DYSTHYMIC DISORDER
  4. ALPRAZOLAM [Concomitant]
     Indication: DYSTHYMIC DISORDER

REACTIONS (6)
  - Intentional overdose [Unknown]
  - Drug interaction [Unknown]
  - Suicide attempt [Unknown]
  - Pulmonary embolism [Unknown]
  - Syncope [Unknown]
  - Respiratory failure [Unknown]
